FAERS Safety Report 6161489-3 (Version None)
Quarter: 2009Q2

REPORT INFORMATION
  Report Type: 
  Country: None (occurrence: None)
  Receive Date: 20090421
  Receipt Date: 20090414
  Transmission Date: 20091009
  Serious: Yes (Hospitalization, Other)
  Sender: FDA-Public Use
  Company Number: PHEH2009US03164

PATIENT
  Sex: Male

DRUGS (5)
  1. STALEVO 100 [Suspect]
     Dosage: UNK
     Dates: start: 20080201, end: 20081001
  2. COMTAN [Suspect]
     Dosage: 200 MG, TID
     Route: 048
     Dates: start: 20081001, end: 20081001
  3. AZILECT [Suspect]
     Dosage: UNK
     Dates: start: 20081001, end: 20081001
  4. CARBIDOPA + LEVODOPA [Suspect]
     Indication: PARKINSON'S DISEASE
     Dosage: 1.5 DF, QID
     Route: 048
     Dates: start: 20070601
  5. CARBIDOPA + LEVODOPA [Suspect]
     Indication: PARKINSON'S DISEASE
     Dosage: 1 DF, TID
     Route: 048
     Dates: start: 20071201, end: 20090301

REACTIONS (10)
  - BODY TEMPERATURE INCREASED [None]
  - DYSKINESIA [None]
  - DYSPNOEA [None]
  - FACE INJURY [None]
  - FOAMING AT MOUTH [None]
  - HEAD DISCOMFORT [None]
  - HYPERHIDROSIS [None]
  - OBSESSIVE-COMPULSIVE DISORDER [None]
  - PARANOIA [None]
  - TREMOR [None]
